FAERS Safety Report 19546881 (Version 1)
Quarter: 2021Q3

REPORT INFORMATION
  Report Type: Spontaneous
  Country: DE (occurrence: DE)
  Receive Date: 20210714
  Receipt Date: 20210714
  Transmission Date: 20211014
  Serious: Yes (Death, Hospitalization)
  Sender: FDA-Public Use
  Company Number: DE-TEVA-2021-DE-1931683

PATIENT
  Age: 83 Year
  Sex: Male
  Weight: 69.2 kg

DRUGS (11)
  1. PANTOPRAZOL [Concomitant]
     Active Substance: PANTOPRAZOLE SODIUM
     Dosage: 2 DOSAGE FORMS DAILY; 1?0?1?0
     Route: 048
  2. CLOTRIMAZOL [Concomitant]
     Active Substance: CLOTRIMAZOLE
     Dosage: 10 MILLIGRAM DAILY;  0?0?1?0
     Route: 003
  3. SPIRONOLACTON [Suspect]
     Active Substance: SPIRONOLACTONE
     Dosage: 100 MILLIGRAM DAILY; 1?0?0?0
     Route: 048
  4. METAMIZOL [Concomitant]
     Active Substance: METAMIZOLE SODIUM
     Dosage: 20 GTT, IF NECESSARY,
     Route: 048
  5. NATRIUMPICOSULFAT [Concomitant]
     Active Substance: SODIUM PICOSULFATE
     Dosage: 8 DOSAGE FORMS DAILY; 0?0?0?8
     Route: 048
  6. APIXABAN [Suspect]
     Active Substance: APIXABAN
     Dosage: 5 MILLIGRAM DAILY;  1?0?1?0
     Route: 048
  7. XIPAMID [Suspect]
     Active Substance: XIPAMIDE
     Dosage: 10 MILLIGRAM DAILY; 1?0?0?0
     Route: 048
  8. TRICLOSAN. [Concomitant]
     Active Substance: TRICLOSAN
     Dosage: 1 DOSAGE FORMS DAILY; 20 | 1 MG / G, 1?0?0?0
     Route: 003
  9. TORASEMID [Suspect]
     Active Substance: TORSEMIDE
     Dosage: 20 MILLIGRAM DAILY;  1?0?0?0
     Route: 048
  10. ALLOPURINOL. [Concomitant]
     Active Substance: ALLOPURINOL
     Dosage: 100 MILLIGRAM DAILY;  1?0?0?0
     Route: 048
  11. TRICLOSAN/FLUMETASON [Concomitant]
     Dosage: .2 MILLIGRAM DAILY;  1?0?0?0
     Route: 003

REACTIONS (3)
  - Asthenia [Unknown]
  - General physical health deterioration [Unknown]
  - Haemoptysis [Unknown]
